FAERS Safety Report 14635082 (Version 3)
Quarter: 2019Q3

REPORT INFORMATION
  Report Type: Spontaneous
  Country: US (occurrence: US)
  Receive Date: 20180314
  Receipt Date: 20190913
  Transmission Date: 20191004
  Serious: Yes (Other)
  Sender: FDA-Public Use
  Company Number: US-PFIZER INC-2018103044

PATIENT
  Age: 9 Year
  Sex: Male
  Weight: 40.36 kg

DRUGS (4)
  1. GENOTROPIN [Suspect]
     Active Substance: SOMATROPIN
     Dosage: 1.6 MG, 6 NIGHTS/WEEK
     Route: 058
     Dates: start: 2018
  2. GENOTROPIN [Suspect]
     Active Substance: SOMATROPIN
     Dosage: 1.6 MG, 6 NIGHTS/WEEK
     Route: 058
     Dates: start: 2018
  3. GENOTROPIN [Suspect]
     Active Substance: SOMATROPIN
     Indication: GROWTH DISORDER
     Dosage: 1.4 MG X 6 DAYS PER WEEK
     Dates: start: 201802
  4. GENOTROPIN [Suspect]
     Active Substance: SOMATROPIN
     Dosage: 2.2 MG, 6 NIGHTS/WEEK
     Route: 058
     Dates: start: 2018

REACTIONS (5)
  - Cyst [Unknown]
  - Injection site haemorrhage [Unknown]
  - Injection site haematoma [Unknown]
  - Therapeutic product effect incomplete [Unknown]
  - Injection site mass [Unknown]
